FAERS Safety Report 11264771 (Version 1)
Quarter: 2015Q3

REPORT INFORMATION
  Report Type: Report from Study
  Country: US (occurrence: US)
  Receive Date: 20150713
  Receipt Date: 20150713
  Transmission Date: 20151125
  Serious: No
  Sender: FDA-Public Use
  Company Number: PHEH2014US011434

PATIENT
  Sex: Female

DRUGS (1)
  1. DIOVAN [Suspect]
     Active Substance: VALSARTAN
     Dosage: 40 MG, DAILY
     Route: 048
     Dates: end: 20140529

REACTIONS (2)
  - Weight decreased [Unknown]
  - Hypotension [Recovered/Resolved]
